FAERS Safety Report 5824469-0 (Version None)
Quarter: 2008Q3

REPORT INFORMATION
  Report Type: 
  Country: None (occurrence: None)
  Receive Date: 20080728
  Receipt Date: 20080718
  Transmission Date: 20090109
  Serious: Yes (Hospitalization)
  Sender: FDA-Public Use
  Company Number: B0530616A

PATIENT
  Age: 85 Year
  Sex: Male

DRUGS (7)
  1. CEFUROXIME AXETIL [Suspect]
     Route: 048
     Dates: start: 20080628, end: 20080707
  2. AMLOPIN [Concomitant]
     Route: 048
  3. ALLOPUR [Concomitant]
     Route: 048
  4. CO-APROVEL [Concomitant]
     Route: 048
  5. TORSEMIDE [Concomitant]
     Route: 048
  6. DIGOXIN [Concomitant]
     Route: 048
  7. ASPIRIN [Concomitant]
     Route: 048

REACTIONS (4)
  - ABDOMINAL PAIN [None]
  - CAMPYLOBACTER INTESTINAL INFECTION [None]
  - CLOSTRIDIAL INFECTION [None]
  - DIARRHOEA [None]
